FAERS Safety Report 10347322 (Version 7)
Quarter: 2016Q1

REPORT INFORMATION
  Report Type: Spontaneous
  Country: US (occurrence: US)
  Receive Date: 20140729
  Receipt Date: 20160304
  Transmission Date: 20160525
  Serious: Yes (Other)
  Sender: FDA-Public Use
  Company Number: US-PFIZER INC-2014208354

PATIENT
  Age: 37 Year
  Sex: Female
  Weight: 56.24 kg

DRUGS (6)
  1. DILANTIN [Suspect]
     Active Substance: PHENYTOIN
     Dosage: UNK
     Route: 048
  2. DILANTIN [Suspect]
     Active Substance: PHENYTOIN
     Indication: SEIZURE
     Dosage: 100 MG, 3X/DAY
     Route: 048
     Dates: start: 2008
  3. DILANTIN [Suspect]
     Active Substance: PHENYTOIN
     Dosage: 100 MG, 3X/DAY
     Route: 048
     Dates: start: 2009
  4. DILANTIN [Suspect]
     Active Substance: PHENYTOIN
     Dosage: UNK (2X DAY TO 4X DAY IN THE PAST)
     Route: 048
  5. DILANTIN [Suspect]
     Active Substance: PHENYTOIN
     Indication: EPILEPSY
     Dosage: 100 MG, 4X/DAY
     Route: 048
  6. DILANTIN [Suspect]
     Active Substance: PHENYTOIN
     Dosage: 1 DF, 3X/DAY
     Route: 048

REACTIONS (3)
  - Anticonvulsant drug level decreased [Unknown]
  - Seizure [Not Recovered/Not Resolved]
  - Condition aggravated [Not Recovered/Not Resolved]

NARRATIVE: CASE EVENT DATE: 2009
